FAERS Safety Report 14925906 (Version 1)
Quarter: 2018Q2

REPORT INFORMATION
  Report Type: Spontaneous
  Country: FR (occurrence: FR)
  Receive Date: 20180522
  Receipt Date: 20180522
  Transmission Date: 20180711
  Serious: Yes (Hospitalization)
  Sender: FDA-Public Use
  Company Number: FR-TEVA-2018-FR-895385

PATIENT
  Age: 40 Year
  Sex: Female
  Weight: 72 kg

DRUGS (7)
  1. PARKINANE L P 5 MG, G?LULE ? LIB?RATION PROLONG?E [Concomitant]
     Indication: EXTRAPYRAMIDAL DISORDER
     Dosage: 10 MILLIGRAM DAILY;
     Route: 048
  2. TRANSIPEG [Concomitant]
     Active Substance: POLYETHYLENE GLYCOL 3350
     Indication: CONSTIPATION
     Route: 048
  3. CLOZAPINE. [Suspect]
     Active Substance: CLOZAPINE
     Indication: SCHIZOPHRENIA
     Dosage: 700 MILLIGRAM DAILY;
     Route: 048
     Dates: end: 20171128
  4. THERALENE [Concomitant]
     Active Substance: TRIMEPRAZINE
     Indication: INSOMNIA
     Dosage: 10 MILLIGRAM DAILY;
     Route: 048
  5. LAMICTAL [Concomitant]
     Active Substance: LAMOTRIGINE
     Indication: EPILEPSY
     Dosage: 600 MILLIGRAM DAILY;
     Route: 048
  6. TERALITHE [Suspect]
     Active Substance: LITHIUM CARBONATE
     Indication: SCHIZOPHRENIA
     Dosage: 800 MILLIGRAM DAILY;
     Route: 048
     Dates: end: 20171127
  7. URBANYL [Concomitant]
     Active Substance: CLOBAZAM
     Indication: EPILEPSY
     Dosage: 5 MILLIGRAM DAILY;
     Route: 048

REACTIONS (3)
  - Extrapyramidal disorder [Recovered/Resolved]
  - Depressed level of consciousness [Recovered/Resolved]
  - Acute kidney injury [Recovered/Resolved]

NARRATIVE: CASE EVENT DATE: 20171124
